FAERS Safety Report 4370834-0 (Version None)
Quarter: 2004Q2

REPORT INFORMATION
  Report Type: 
  Country: None (occurrence: None)
  Receive Date: 20040526
  Receipt Date: 20040513
  Transmission Date: 20050107
  Serious: Yes (Death, Hospitalization, Other)
  Sender: FDA-Public Use
  Company Number: WAES 0405USA01024

PATIENT
  Age: 41 Year
  Sex: Male

DRUGS (16)
  1. DECADRON [Suspect]
     Dosage: PO
     Route: 048
     Dates: start: 20020430, end: 20020701
  2. CAP TEMOZOLOMIDE [Suspect]
     Indication: GLIOBLASTOMA MULTIFORME
     Dosage: SEE IMAGE
     Route: 048
     Dates: start: 20020516
  3. CAP TEMOZOLOMIDE [Suspect]
     Indication: GLIOBLASTOMA MULTIFORME
     Dosage: SEE IMAGE
     Route: 048
     Dates: start: 20020523
  4. CAP TEMOZOLOMIDE [Suspect]
     Indication: GLIOBLASTOMA MULTIFORME
     Dosage: SEE IMAGE
     Route: 048
     Dates: start: 20020606
  5. CAP TEMOZOLOMIDE [Suspect]
     Indication: GLIOBLASTOMA MULTIFORME
     Dosage: SEE IMAGE
     Route: 048
     Dates: start: 20020613
  6. CAP TEMOZOLOMIDE [Suspect]
     Indication: GLIOBLASTOMA MULTIFORME
     Dosage: SEE IMAGE
     Route: 048
     Dates: start: 20020627
  7. CAP TEMOZOLOMIDE [Suspect]
     Indication: GLIOBLASTOMA MULTIFORME
     Dosage: SEE IMAGE
     Route: 048
     Dates: start: 20020704
  8. SEROPRAM [Concomitant]
  9. TRANXILIUM [Concomitant]
  10. ACETAMINOPHEN [Concomitant]
  11. ATROPINE [Concomitant]
  12. GASTROINTESTINAL PREPARATIONS (UNSPECIFIED) [Concomitant]
  13. METOCLOPRAMIDE [Concomitant]
  14. MORPHINE [Concomitant]
  15. OMEPRAZOLE [Concomitant]
  16. ONDANSETRON [Concomitant]

REACTIONS (10)
  - ANGIOPATHY [None]
  - CEREBRAL HAEMORRHAGE [None]
  - DISEASE RECURRENCE [None]
  - DRUG HYPERSENSITIVITY [None]
  - DRUG TOXICITY [None]
  - INTERSTITIAL LUNG DISEASE [None]
  - MYOPATHY [None]
  - MYOPATHY STEROID [None]
  - PULMONARY FIBROSIS [None]
  - TACHYPNOEA [None]
